FAERS Safety Report 18734650 (Version 1)
Quarter: 2021Q1

REPORT INFORMATION
  Report Type: Spontaneous
  Country: US (occurrence: US)
  Receive Date: 20210113
  Receipt Date: 20210113
  Transmission Date: 20210419
  Serious: No
  Sender: FDA-Public Use
  Company Number: US-BAUSCH-BL-2020-037609

PATIENT
  Age: 64 Year
  Sex: Female

DRUGS (2)
  1. TRULANCE [Suspect]
     Active Substance: PLECANATIDE
     Indication: PRODUCT USED FOR UNKNOWN INDICATION
     Dosage: STARTED OVER 2 YEARS AGO
     Route: 048
     Dates: start: 2018
  2. TRULANCE [Suspect]
     Active Substance: PLECANATIDE
     Dosage: COMPOUNDED DOWN TO 1 MG
     Route: 048

REACTIONS (3)
  - Ill-defined disorder [Unknown]
  - Flatulence [Unknown]
  - Drug intolerance [Unknown]
